FAERS Safety Report 17099681 (Version 1)
Quarter: 2019Q4

REPORT INFORMATION
  Report Type: Report from Study
  Country: GB (occurrence: GB)
  Receive Date: 20191202
  Receipt Date: 20191202
  Transmission Date: 20200122
  Serious: Yes (Other)
  Sender: FDA-Public Use
  Company Number: NVSC2019GB042752

PATIENT
  Age: 7 Year

DRUGS (4)
  1. BLINDED PLACEBO [Suspect]
     Active Substance: INVESTIGATIONAL PRODUCT
     Indication: PARTIAL SEIZURES
     Dosage: CODE NOT BROKEN
     Route: 048
  2. AFINITOR [Suspect]
     Active Substance: EVEROLIMUS
     Indication: PARTIAL SEIZURES
     Dosage: CODE NOT BROKEN
     Route: 048
  3. BLINDED NO TREATMENT RECEIVED [Suspect]
     Active Substance: INVESTIGATIONAL PRODUCT
     Indication: PARTIAL SEIZURES
     Dosage: CODE NOT BROKEN
     Route: 048
  4. AFINITOR [Suspect]
     Active Substance: EVEROLIMUS
     Indication: PARTIAL SEIZURES
     Dosage: CODE NOT BROKEN
     Route: 048

REACTIONS (4)
  - Pancytopenia [Unknown]
  - Pulmonary alveolar haemorrhage [Unknown]
  - Epstein-Barr virus infection [Unknown]
  - Lower respiratory tract infection [Unknown]
